FAERS Safety Report 24280270 (Version 4)
Quarter: 2024Q4

REPORT INFORMATION
  Report Type: Report from Study
  Country: AR (occurrence: AR)
  Receive Date: 20240904
  Receipt Date: 20241010
  Transmission Date: 20250115
  Serious: Yes (Other)
  Sender: TAKEDA
  Company Number: AR-TAKEDA-2024TUS086012

PATIENT
  Age: 22 Year
  Sex: Male
  Weight: 52 kg

DRUGS (2)
  1. IDURSULFASE [Suspect]
     Active Substance: IDURSULFASE
     Indication: Enzyme supplementation
     Dosage: UNK UNK, 1/WEEK
     Route: 042
     Dates: start: 20070507
  2. IDURSULFASE [Suspect]
     Active Substance: IDURSULFASE
     Dosage: UNK UNK, 1/WEEK
     Route: 042

REACTIONS (6)
  - Fall [Unknown]
  - Discharge [Unknown]
  - Productive cough [Unknown]
  - Stress [Unknown]
  - Bronchospasm [Recovered/Resolved]
  - Pyrexia [Recovered/Resolved]

NARRATIVE: CASE EVENT DATE: 20240823
